FAERS Safety Report 5796010-2 (Version None)
Quarter: 2008Q2

REPORT INFORMATION
  Report Type: 
  Country: None (occurrence: None)
  Receive Date: 20080626
  Receipt Date: 20080616
  Transmission Date: 20081010
  Serious: Yes (Hospitalization)
  Sender: FDA-Public Use
  Company Number: 19540

PATIENT
  Age: 54 Year
  Sex: Male

DRUGS (3)
  1. EPIRUBICIN [Suspect]
     Indication: DRUG USE FOR UNKNOWN INDICATION
  2. OXALIPLATIN [Suspect]
     Indication: DRUG USE FOR UNKNOWN INDICATION
     Dates: start: 20080501
  3. CAPECITABINE [Suspect]
     Indication: DRUG USE FOR UNKNOWN INDICATION

REACTIONS (4)
  - CHROMATURIA [None]
  - HYPOTHERMIA [None]
  - MYOCARDIAL INFARCTION [None]
  - OESOPHAGEAL CARCINOMA [None]
